FAERS Safety Report 5722145-6 (Version None)
Quarter: 2008Q2

REPORT INFORMATION
  Report Type: 
  Country: None (occurrence: None)
  Receive Date: 20080429
  Receipt Date: 20070605
  Transmission Date: 20081010
  Serious: No
  Sender: FDA-Public Use
  Company Number: US-ASTRAZENECA-2007UW13535

PATIENT
  Age: 68 Year
  Sex: Female
  Weight: 51.2 kg

DRUGS (6)
  1. NEXIUM [Suspect]
     Indication: GASTROOESOPHAGEAL REFLUX DISEASE
     Route: 048
  2. LORAZEPAM [Concomitant]
  3. NIACIN [Concomitant]
  4. CYMBALTA [Concomitant]
  5. METHYLTREXATE [Concomitant]
  6. HYDROXYCHLOCHEM [Concomitant]

REACTIONS (3)
  - ERYTHEMA [None]
  - NAUSEA [None]
  - PRURITUS [None]
